FAERS Safety Report 11589462 (Version 1)
Quarter: 2015Q4

REPORT INFORMATION
  Report Type: Report from Study
  Country: BR (occurrence: BR)
  Receive Date: 20151002
  Receipt Date: 20151002
  Transmission Date: 20160304
  Serious: Yes (Hospitalization)
  Sender: FDA-Public Use
  Company Number: BR-ABBVIE-15P-020-1471572-00

PATIENT
  Age: 62 Year
  Sex: Female
  Weight: 82 kg

DRUGS (10)
  1. KALETRA [Suspect]
     Active Substance: LOPINAVIR\RITONAVIR
     Indication: HIV INFECTION
     Route: 048
     Dates: start: 200807
  2. KALETRA [Suspect]
     Active Substance: LOPINAVIR\RITONAVIR
     Dosage: 2 TABLETS MORNING, 1 TABLET AT NIGHT
     Route: 048
  3. ATAZANAVIR [Suspect]
     Active Substance: ATAZANAVIR
     Indication: PRODUCT USED FOR UNKNOWN INDICATION
     Route: 065
  4. FAMOX [Concomitant]
     Indication: GASTRIC DISORDER
     Route: 048
     Dates: start: 2012
  5. ABLOK PLUS [Concomitant]
     Active Substance: ATENOLOL\CHLORTHALIDONE
     Indication: BLOOD PRESSURE ABNORMAL
     Route: 048
     Dates: start: 2011
  6. TELZIR [Suspect]
     Active Substance: FOSAMPRENAVIR CALCIUM
     Indication: HIV INFECTION
     Route: 065
     Dates: start: 201506
  7. BIOVIR [Concomitant]
     Active Substance: LAMIVUDINE\ZIDOVUDINE
     Indication: HIV INFECTION
     Dosage: FORM STRENGTH? 150MG / 300MG
     Route: 048
  8. KALETRA [Suspect]
     Active Substance: LOPINAVIR\RITONAVIR
     Indication: HIV INFECTION
     Route: 048
     Dates: start: 20020829
  9. KALETRA [Suspect]
     Active Substance: LOPINAVIR\RITONAVIR
     Route: 048
  10. NORVIR [Suspect]
     Active Substance: RITONAVIR
     Indication: HIV INFECTION
     Route: 065
     Dates: start: 201506

REACTIONS (19)
  - Skin mass [Recovered/Resolved]
  - Hepatotoxicity [Recovered/Resolved]
  - Pruritus [Recovered/Resolved]
  - Blood triglycerides abnormal [Recovered/Resolved]
  - Dysentery [Recovering/Resolving]
  - Vomiting [Recovering/Resolving]
  - Hypersensitivity [Recovered/Resolved]
  - Drug-induced liver injury [Recovered/Resolved]
  - Diabetes mellitus [Recovered/Resolved]
  - Ear discomfort [Recovered/Resolved]
  - Yellow skin [Recovered/Resolved]
  - Blood cholesterol abnormal [Recovered/Resolved]
  - Viral load [Unknown]
  - Pruritus generalised [Recovered/Resolved]
  - Nephropathy toxic [Recovered/Resolved]
  - Nausea [Not Recovered/Not Resolved]
  - Dyspnoea [Recovered/Resolved]
  - Drug hypersensitivity [Recovered/Resolved]
  - Swelling [Recovered/Resolved]

NARRATIVE: CASE EVENT DATE: 2002
